FAERS Safety Report 8825714 (Version 1)
Quarter: 2012Q4

REPORT INFORMATION
  Report Type: 
  Country: CA (occurrence: CA)
  Receive Date: 20121004
  Receipt Date: 20121004
  Transmission Date: 20130627
  Serious: Yes (Other)
  Sender: FDA-Public Use
  Company Number: CA-PFIZER INC-2012243981

PATIENT
  Age: 46 Year
  Sex: Male
  Weight: 111.4 kg

DRUGS (8)
  1. DEXAMETHASONE SODIUM PHOSPHATE [Suspect]
     Indication: CHEMOTHERAPY
     Dosage: 12 mg, daily
  2. DEXAMETHASONE SODIUM PHOSPHATE [Suspect]
     Dosage: 4 mg, daily
  3. DEXAMETHASONE SODIUM PHOSPHATE [Suspect]
     Dosage: 8 mg daily
  4. DEXAMETHASONE SODIUM PHOSPHATE [Suspect]
     Dosage: 12 mg daily
  5. DEXAMETHASONE SODIUM PHOSPHATE [Suspect]
     Dosage: 16 mg daily
  6. DEXAMETHASONE SODIUM PHOSPHATE [Suspect]
     Dosage: 12 mg daily
     Route: 048
  7. TEMOZOLOMIDE [Suspect]
     Indication: CHEMOTHERAPY
     Dosage: 150 mg/m2, cyclic, Days 1-5 every 28 days
  8. TEMOZOLOMIDE [Suspect]
     Dosage: 200 mg/m2, cyclic on Days 1-5 every 28 days

REACTIONS (2)
  - Hepatic steatosis [Recovering/Resolving]
  - Liver function test abnormal [Recovering/Resolving]
